FAERS Safety Report 5462928-3 (Version None)
Quarter: 2007Q3

REPORT INFORMATION
  Report Type: 
  Country: None (occurrence: None)
  Receive Date: 20070920
  Receipt Date: 20070910
  Transmission Date: 20080115
  Serious: Yes (Hospitalization, Other)
  Sender: FDA-Public Use
  Company Number: IL-AVENTIS-200718318GDDC

PATIENT
  Age: 20 Year
  Sex: Male

DRUGS (5)
  1. FLUOROURACIL INJ [Suspect]
     Indication: RECTAL CANCER
     Route: 042
  2. AVASTIN [Suspect]
     Indication: RECTAL CANCER
     Dosage: DOSE: 300 MG
     Route: 042
  3. CAMPTO                             /01280202/ [Suspect]
     Indication: RECTAL CANCER
     Dosage: DOSE: 180 MG
     Route: 042
  4. CAMPTO                             /01280202/ [Suspect]
     Dosage: DOSE: 180 MG
     Route: 042
  5. LEUCOVORIN CALCIUM [Concomitant]
     Indication: RECTAL CANCER
     Dosage: DOSE: UNK
     Route: 042

REACTIONS (1)
  - COLITIS ISCHAEMIC [None]
